FAERS Safety Report 5196815-5 (Version None)
Quarter: 2006Q4

REPORT INFORMATION
  Report Type: 
  Country: None (occurrence: None)
  Receive Date: 20061227
  Receipt Date: 20061212
  Transmission Date: 20070319
  Serious: Yes (Other)
  Sender: FDA-Public Use
  Company Number: 2006153946

PATIENT
  Age: 55 Year
  Sex: Female

DRUGS (6)
  1. LYRICA [Suspect]
     Indication: NEURALGIA
     Dosage: 150 MG (50 MG, 3 IN1  D)
     Dates: start: 20061002
  2. STATING (HMG COA REDUCTASE INHIBITORS) [Concomitant]
  3. NEXIUM [Concomitant]
  4. METFORMIN HCL [Concomitant]
  5. AVANDIA [Concomitant]
  6. WELLBUTRIN [Concomitant]

REACTIONS (1)
  - MAJOR DEPRESSION [None]
